FAERS Safety Report 4750378-4 (Version None)
Quarter: 2005Q3

REPORT INFORMATION
  Report Type: 
  Country: None (occurrence: None)
  Receive Date: 20050823
  Receipt Date: 20050809
  Transmission Date: 20060218
  Serious: Yes (Disabling, Other)
  Sender: FDA-Public Use
  Company Number: 2005AP04483

PATIENT
  Age: 15690 Day
  Sex: Female
  Weight: 75 kg

DRUGS (2)
  1. NEXIUM [Suspect]
     Route: 048
     Dates: start: 20050504, end: 20050809
  2. LEVONORGESTREL AND ETHINYL ESTRADIOL [Concomitant]
     Route: 048

REACTIONS (4)
  - C-REACTIVE PROTEIN INCREASED [None]
  - MYALGIA [None]
  - PALPITATIONS [None]
  - THROAT TIGHTNESS [None]
